FAERS Safety Report 15617148 (Version 10)
Quarter: 2021Q1

REPORT INFORMATION
  Report Type: Spontaneous
  Country: US (occurrence: US)
  Receive Date: 20181114
  Receipt Date: 20210115
  Transmission Date: 20210419
  Serious: Yes (Other)
  Sender: FDA-Public Use
  Company Number: US-PFIZER INC-2017388588

PATIENT
  Age: 68 Year
  Sex: Female
  Weight: 72.11 kg

DRUGS (21)
  1. LYRICA [Suspect]
     Active Substance: PREGABALIN
     Indication: POLYNEUROPATHY
     Dosage: 75 MG, 3X/DAY
     Route: 048
  2. SACCHAROMYCES BOULARDII [Concomitant]
     Active Substance: SACCHAROMYCES CEREVISIAE
     Dosage: UNK UNK, DAILY (ONE DAILY BREAKFAST)
  3. POTASSIUM CITRATE. [Concomitant]
     Active Substance: POTASSIUM CITRATE
     Dosage: 20 MEQ, 3X/DAY (TID WITH MEALS)
  4. VITAMIN D 2000 [Concomitant]
     Active Substance: VITAMIN D NOS
     Dosage: 2000 MG, 1X/DAY (DAILY LUNCH)
  5. LYRICA [Suspect]
     Active Substance: PREGABALIN
     Dosage: 150 MG, 3X/DAY
     Route: 048
  6. MOBIC [Concomitant]
     Active Substance: MELOXICAM
     Dosage: 7.5 MG, DAILY
  7. LYRICA [Suspect]
     Active Substance: PREGABALIN
     Dosage: 150 MG, 2X/DAY [EVERY MORNING (QAM) AND EVERY NIGHT AT BEDTIME (QHS)]
     Route: 048
  8. MIRALAX [Concomitant]
     Active Substance: POLYETHYLENE GLYCOL 3350
     Dosage: 17 G, AS NEEDED (DAILY HS PEN PRN)
  9. TYLENOL [Concomitant]
     Active Substance: ACETAMINOPHEN
     Dosage: UNK UNK, AS NEEDED (500?1000 MG)
  10. DICLOFENAC SODIUM. [Concomitant]
     Active Substance: DICLOFENAC SODIUM
     Dosage: UNK UNK, AS NEEDED
  11. MELATONIN [Concomitant]
     Active Substance: MELATONIN
     Dosage: 6 MG, 1X/DAY (NIGHTLY)
  12. LYRICA [Suspect]
     Active Substance: PREGABALIN
     Indication: NEUROPATHY PERIPHERAL
     Dosage: 100 MG, 3X/DAY (TID)
     Route: 048
     Dates: start: 2014
  13. LYRICA [Suspect]
     Active Substance: PREGABALIN
     Dosage: 400 MG, DAILY (150 MG AM AND PM. 100MG MID AFTERNOON)
     Route: 048
  14. EPIPEN [Concomitant]
     Active Substance: EPINEPHRINE
     Dosage: UNK UNK, AS NEEDED (PRN)
  15. MAGNESIUM CITRATE. [Concomitant]
     Active Substance: MAGNESIUM CITRATE
     Dosage: 400 MG, DAILY (1 DAILY)
  16. PUMPKIN SEED OIL [Concomitant]
     Dosage: 3000 MG, DAILY
  17. VITAMIN K2 [Concomitant]
     Active Substance: MENAQUINONE 6
     Dosage: 5 MG, DAILY
  18. LYRICA [Suspect]
     Active Substance: PREGABALIN
     Dosage: 100 MG, UNK
  19. LYRICA [Suspect]
     Active Substance: PREGABALIN
     Dosage: 100 MG, 1X/DAY (IN THE AFTERNOON)
     Route: 048
  20. JARRO DOPHILUS [Concomitant]
     Dosage: UNK UNK, DAILY [ONE DAILY BREAKFAST]
  21. KONSYL [Concomitant]
     Active Substance: PSYLLIUM HUSK
     Dosage: UNK UNK, 1X/DAY (1 TSP. DAILY EVENING)

REACTIONS (7)
  - Drug ineffective [Unknown]
  - Fatigue [Not Recovered/Not Resolved]
  - Drug dependence [Unknown]
  - Intentional product use issue [Unknown]
  - Dyslexia [Unknown]
  - Somnolence [Unknown]
  - Spinal stenosis [Unknown]

NARRATIVE: CASE EVENT DATE: 2017
